FAERS Safety Report 9914976 (Version 1)
Quarter: 2014Q1

REPORT INFORMATION
  Report Type: Spontaneous
  Country: ES (occurrence: ES)
  Receive Date: 20140220
  Receipt Date: 20140220
  Transmission Date: 20141002
  Serious: Yes (Hospitalization, Other)
  Sender: FDA-Public Use
  Company Number: CHPA2014ES002764

PATIENT
  Age: 5 Year
  Sex: Male

DRUGS (2)
  1. IBUPROFEN [Suspect]
     Indication: PYREXIA
     Dosage: UNK, 2 DOSES
     Route: 065
  2. IBUPROFEN [Suspect]
     Indication: NASOPHARYNGITIS

REACTIONS (2)
  - Gastric disorder [Recovered/Resolved]
  - Haematemesis [Recovered/Resolved]
